FAERS Safety Report 7610979-2 (Version None)
Quarter: 2011Q3

REPORT INFORMATION
  Report Type: 
  Country: None (occurrence: None)
  Receive Date: 20110715
  Receipt Date: 20110711
  Transmission Date: 20111222
  Serious: Yes (Other)
  Sender: FDA-Public Use
  Company Number: FR-PFIZER INC-2011155279

PATIENT
  Age: 69 Year
  Sex: Male

DRUGS (11)
  1. LANTUS [Concomitant]
     Dosage: UNK
  2. LOVENOX [Concomitant]
     Dosage: UNK
  3. SOLU-MEDROL [Suspect]
     Dosage: 120 MG, 2X/DAY
     Route: 042
     Dates: start: 20110624, end: 20110625
  4. AMLODIPINE BESYLATE [Concomitant]
     Dosage: UNK
  5. SOLU-MEDROL [Suspect]
     Dosage: 100 MG, 1X/DAY
     Route: 042
     Dates: start: 20110627, end: 20110629
  6. SOLU-MEDROL [Suspect]
     Dosage: 120 MG, 2X/DAY
     Route: 042
     Dates: start: 20110620, end: 20110620
  7. SOLU-MEDROL [Suspect]
     Dosage: 80 MG, 2X/DAY
     Route: 042
     Dates: start: 20110626, end: 20110626
  8. AVODART [Concomitant]
     Dosage: UNK
  9. ACTRAPID [Concomitant]
     Dosage: UNK
  10. SOLU-MEDROL [Suspect]
     Dosage: 120 MG, 3X/DAY
     Route: 042
     Dates: start: 20110621, end: 20110623
  11. EFFEXOR [Concomitant]
     Dosage: UNK

REACTIONS (2)
  - DELIRIUM [None]
  - DELUSIONAL DISORDER, PERSECUTORY TYPE [None]
